FAERS Safety Report 5444602-2 (Version None)
Quarter: 2007Q3

REPORT INFORMATION
  Report Type: 
  Country: None (occurrence: None)
  Receive Date: 20070831
  Receipt Date: 20070823
  Transmission Date: 20080115
  Serious: Yes (Hospitalization)
  Sender: FDA-Public Use
  Company Number: 2007-03930

PATIENT
  Age: 49 Year
  Sex: Female

DRUGS (2)
  1. NOR-QD [Suspect]
     Indication: TUMOUR HAEMORRHAGE
     Dosage: 100 MG, DAILY, ORAL
     Route: 048
     Dates: start: 20070101
  2. NOR-QD [Suspect]
     Indication: UTERINE HAEMORRHAGE
     Dosage: 100 MG, DAILY, ORAL
     Route: 048
     Dates: start: 20070101

REACTIONS (5)
  - DEEP VEIN THROMBOSIS [None]
  - GENE MUTATION [None]
  - JUGULAR VEIN THROMBOSIS [None]
  - SUBCLAVIAN VEIN THROMBOSIS [None]
  - VENA CAVA THROMBOSIS [None]
